FAERS Safety Report 18775725 (Version 2)
Quarter: 2021Q1

REPORT INFORMATION
  Report Type: Report from Study
  Country: CA (occurrence: CA)
  Receive Date: 20210122
  Receipt Date: 20210207
  Transmission Date: 20210419
  Serious: Yes (Hospitalization, Other)
  Sender: FDA-Public Use
  Company Number: CA-TAKEDA-2017TUS012623

PATIENT
  Age: 60 Year
  Sex: Female

DRUGS (9)
  1. VEDOLIZUMAB [Suspect]
     Active Substance: VEDOLIZUMAB
     Indication: CROHN^S DISEASE
     Dosage: 300 MILLIGRAM
     Route: 042
     Dates: start: 20170425
  2. VEDOLIZUMAB [Suspect]
     Active Substance: VEDOLIZUMAB
     Dosage: 300 MILLIGRAM, Q4WEEKS
     Route: 042
     Dates: start: 20201028, end: 20201223
  3. ENTOCORT [Concomitant]
     Active Substance: BUDESONIDE
     Dosage: UNK
  4. VEDOLIZUMAB [Suspect]
     Active Substance: VEDOLIZUMAB
     Dosage: 300 MILLIGRAM
     Route: 042
  5. NEXIUM [Concomitant]
     Active Substance: ESOMEPRAZOLE MAGNESIUM
     Dosage: UNK
  6. COVERSYL                           /00790702/ [Concomitant]
     Active Substance: PERINDOPRIL
     Dosage: UNK
  7. VEDOLIZUMAB [Suspect]
     Active Substance: VEDOLIZUMAB
     Dosage: 300 MILLIGRAM
     Route: 042
  8. VEDOLIZUMAB [Suspect]
     Active Substance: VEDOLIZUMAB
     Dosage: 300 MILLIGRAM
     Route: 042
  9. VEDOLIZUMAB [Suspect]
     Active Substance: VEDOLIZUMAB
     Dosage: 300 MILLIGRAM
     Route: 042

REACTIONS (15)
  - Pneumonia [Unknown]
  - Diarrhoea [Unknown]
  - Nausea [Not Recovered/Not Resolved]
  - Intestinal resection [Unknown]
  - Crohn^s disease [Unknown]
  - Abscess intestinal [Unknown]
  - Pain [Unknown]
  - Blood pressure increased [Unknown]
  - Flatulence [Not Recovered/Not Resolved]
  - Abdominal pain [Not Recovered/Not Resolved]
  - Off label use [Unknown]
  - Stress [Unknown]
  - Weight decreased [Unknown]
  - Decreased appetite [Not Recovered/Not Resolved]
  - Constipation [Not Recovered/Not Resolved]

NARRATIVE: CASE EVENT DATE: 2017
